FAERS Safety Report 23452221 (Version 1)
Quarter: 2024Q1

REPORT INFORMATION
  Report Type: Spontaneous
  Country: US (occurrence: US)
  Receive Date: 20240129
  Receipt Date: 20240129
  Transmission Date: 20240409
  Serious: Yes (Other)
  Sender: FDA-Public Use
  Company Number: US-FreseniusKabi-FK202401135

PATIENT
  Age: 9 Day
  Sex: Male
  Weight: 1.8 kg

DRUGS (10)
  1. SMOFLIPID [Suspect]
     Active Substance: FISH OIL\MEDIUM-CHAIN TRIGLYCERIDES\OLIVE OIL\SOYBEAN OIL
     Indication: Parenteral nutrition
     Dosage: DOSAGE (DOSE AND FREQUENCY): ASKED BUT UNKNOWN
     Route: 042
     Dates: start: 20231108, end: 20231118
  2. OMEGAVEN [Suspect]
     Active Substance: FISH OIL
     Indication: Bilirubin conjugated increased
     Dosage: OMEGAVEN WAS STARTED ON 11/18/23 AT 0.5G/KG/DAY THEN WAS INCREASED TO 1G/KG/DAY ON 11/19/23.
  3. OMEGAVEN [Suspect]
     Active Substance: FISH OIL
     Dosage: STARTED VIA PICC LINE ON 05DEC2023?EXPIRY: ASKED BUT UNKNOWN?OMEGAVEN WAS STARTED ON 11/18/23 AT 0.5
     Route: 042
     Dates: start: 20231119, end: 20240118
  4. OMEGAVEN [Suspect]
     Active Substance: FISH OIL
     Dosage: 50ML
  5. OMEGAVEN [Suspect]
     Active Substance: FISH OIL
     Dosage: 100ML
  6. IRON DEXTRAN [Suspect]
     Active Substance: IRON DEXTRAN
     Indication: Product used for unknown indication
     Dosage: EXPIRY: ASKED BUT UNKNOWN?DOSAGE (DOSE AND FREQUENCY): ASKED BUT UNKNOWN
     Route: 042
  7. ZINC [Suspect]
     Active Substance: PYRITHIONE ZINC\ZINC\ZINC CHLORIDE
     Indication: Product used for unknown indication
     Dosage: EXPIRY: ASKED BUT UNKNOWN?DOSAGE (DOSE AND FREQUENCY): ASKED BUT UNKNOWN
     Route: 042
  8. COPPER [Suspect]
     Active Substance: COPPER
     Indication: Product used for unknown indication
     Dosage: EXPIRY: ASKED BUT UNKNOWN?DOSAGE (DOSE AND FREQUENCY): ASKED BUT UNKNOWN
     Route: 042
  9. LEVOTHYROXINE [Concomitant]
     Active Substance: LEVOTHYROXINE\LEVOTHYROXINE SODIUM
     Indication: Product used for unknown indication
     Dosage: VIA SEPARATE LUMEN OF PICC LINE
  10. PHENOBARBITAL [Concomitant]
     Active Substance: PHENOBARBITAL
     Indication: Product used for unknown indication
     Dosage: VIA SEPARATE LUMEN OF PICC LINE

REACTIONS (3)
  - Parenteral nutrition associated liver disease [Not Recovered/Not Resolved]
  - Drug ineffective [Unknown]
  - Off label use [Unknown]

NARRATIVE: CASE EVENT DATE: 20231116
